FAERS Safety Report 6729655-3 (Version None)
Quarter: 2010Q2

REPORT INFORMATION
  Report Type: 
  Country: None (occurrence: None)
  Receive Date: 20100518
  Receipt Date: 20100506
  Transmission Date: 20101027
  Serious: Yes (Other)
  Sender: FDA-Public Use
  Company Number: CA-JNJFOC-20100505159

PATIENT
  Sex: Female
  Weight: 76 kg

DRUGS (6)
  1. REMICADE [Suspect]
     Indication: COLITIS ULCERATIVE
     Dosage: DURATION ^TO PRESENT^
     Route: 042
  2. DIURETIC [Concomitant]
     Indication: OEDEMA PERIPHERAL
  3. ASACOL [Concomitant]
  4. LIPITOR [Concomitant]
  5. TYLENOL (CAPLET) [Concomitant]
     Indication: ARTHRITIS
  6. PREDNISONE [Concomitant]

REACTIONS (2)
  - COLITIS ULCERATIVE [None]
  - ORTHOPNOEA [None]
